FAERS Safety Report 5368007-8 (Version None)
Quarter: 2007Q2

REPORT INFORMATION
  Report Type: 
  Country: None (occurrence: None)
  Receive Date: 20070622
  Receipt Date: 20070611
  Transmission Date: 20071010
  Serious: Yes (Other)
  Sender: FDA-Public Use
  Company Number: BR-PFIZER INC-2007048395

PATIENT
  Age: 54 Year
  Sex: Male

DRUGS (1)
  1. DIABINESE [Suspect]
     Indication: DIABETES MELLITUS NON-INSULIN-DEPENDENT
     Route: 048

REACTIONS (4)
  - GASTRIC HAEMORRHAGE [None]
  - HEPATIC CIRRHOSIS [None]
  - LIVER DISORDER [None]
  - PORTAL HYPERTENSION [None]
